FAERS Safety Report 7659726-9 (Version None)
Quarter: 2011Q3

REPORT INFORMATION
  Report Type: 
  Country: None (occurrence: None)
  Receive Date: 20110805
  Receipt Date: 20110520
  Transmission Date: 20111222
  Serious: No
  Sender: FDA-Public Use
  Company Number: PHHY2011US39301

PATIENT
  Sex: Male

DRUGS (7)
  1. AMPILEAN [Concomitant]
     Dosage: 10 MG, QD
  2. WATER PILLS [Concomitant]
  3. VALTURNA [Suspect]
     Dosage: 150 MG ALISK AND 160 MG VALS, QD
  4. METFORMIN HCL [Concomitant]
     Dosage: UNK UKN, BID
  5. TOPROL-XL [Concomitant]
     Dosage: 100 MG, QD
  6. ZOCOR [Concomitant]
  7. VALTURNA [Suspect]
     Dosage: 300 MG ALISK AND 320 MG VALS, QD

REACTIONS (1)
  - DIARRHOEA [None]
